FAERS Safety Report 7671958-2 (Version None)
Quarter: 2011Q3

REPORT INFORMATION
  Report Type: 
  Country: None (occurrence: None)
  Receive Date: 20110809
  Receipt Date: 20110729
  Transmission Date: 20111222
  Serious: Yes (Death)
  Sender: FDA-Public Use
  Company Number: JP-GLAXOSMITHKLINE-B0674196A

PATIENT
  Sex: Male
  Weight: 56 kg

DRUGS (13)
  1. ALKERAN [Suspect]
     Indication: ALLOGENIC BONE MARROW TRANSPLANTATION THERAPY
     Dosage: 60MGM2 PER DAY
     Route: 042
     Dates: start: 20060508, end: 20060510
  2. MEROPENEM [Concomitant]
     Dosage: 2G PER DAY
     Route: 042
     Dates: start: 20060510, end: 20060523
  3. VANCOMYCIN [Concomitant]
     Dosage: .5G PER DAY
     Route: 042
     Dates: start: 20060520, end: 20060523
  4. OMEPRAZOLE [Concomitant]
     Dosage: 20MG PER DAY
     Route: 042
     Dates: start: 20060509, end: 20060523
  5. GRAN [Concomitant]
     Route: 058
     Dates: start: 20060512, end: 20060524
  6. FULCALIQ [Concomitant]
     Dosage: 1800ML PER DAY
     Route: 042
     Dates: start: 20060506, end: 20060522
  7. METHOTREXATE [Concomitant]
     Indication: IMMUNOSUPPRESSION
     Dosage: 15MG PER DAY
     Route: 065
     Dates: start: 20060512, end: 20060517
  8. BORRAZA-G [Concomitant]
     Route: 061
     Dates: end: 20060523
  9. ZOVIRAX [Concomitant]
     Dosage: 250MG PER DAY
     Route: 042
     Dates: start: 20060510, end: 20060523
  10. FLUDARA [Suspect]
     Indication: ALLOGENIC BONE MARROW TRANSPLANTATION THERAPY
     Dosage: 30MGM2 PER DAY
     Route: 042
     Dates: start: 20060504, end: 20060509
  11. FUNGUARD [Concomitant]
     Dosage: 100MG PER DAY
     Route: 042
     Dates: start: 20060509, end: 20060521
  12. PRIMPERAN TAB [Concomitant]
     Dosage: 10MG PER DAY
     Dates: start: 20060510, end: 20060511
  13. CYCLOSPORINE [Concomitant]
     Indication: IMMUNOSUPPRESSION
     Dosage: 100MG PER DAY
     Route: 065
     Dates: start: 20060510, end: 20060524

REACTIONS (1)
  - SEPSIS [None]
